FAERS Safety Report 14702998 (Version 1)
Quarter: 2018Q2

REPORT INFORMATION
  Report Type: Other
  Country: TW (occurrence: TW)
  Receive Date: 20180402
  Receipt Date: 20180402
  Transmission Date: 20180711
  Serious: Yes (Other)
  Sender: FDA-Public Use
  Company Number: TW-AJANTA PHARMA USA INC.-2044874

PATIENT
  Age: 67 Year
  Sex: Female

DRUGS (2)
  1. CLOZAPINE. [Concomitant]
     Active Substance: CLOZAPINE
  2. RIVASTIGMINE TARTRATE (ANDA 207797) [Suspect]
     Active Substance: RIVASTIGMINE TARTRATE
     Indication: DEMENTIA ALZHEIMER^S TYPE
     Route: 048

REACTIONS (1)
  - Pleurothotonus [Recovered/Resolved]

NARRATIVE: CASE EVENT DATE: 20171109
